FAERS Safety Report 5561778-7 (Version None)
Quarter: 2007Q4

REPORT INFORMATION
  Report Type: 
  Country: None (occurrence: None)
  Receive Date: 20071215
  Receipt Date: 20071010
  Transmission Date: 20080405
  Serious: No
  Sender: FDA-Public Use
  Company Number: US-AMGEN-KDL246145

PATIENT
  Sex: Male
  Weight: 94.9 kg

DRUGS (1)
  1. ENBREL [Suspect]
     Indication: ANKYLOSING SPONDYLITIS
     Route: 058
     Dates: start: 20041220

REACTIONS (5)
  - BACK PAIN [None]
  - INJECTION SITE REACTION [None]
  - PAIN IN EXTREMITY [None]
  - RASH MACULAR [None]
  - SINUSITIS [None]
